FAERS Safety Report 24265157 (Version 3)
Quarter: 2024Q4

REPORT INFORMATION
  Report Type: Spontaneous
  Country: US (occurrence: US)
  Receive Date: 20240829
  Receipt Date: 20241008
  Transmission Date: 20250115
  Serious: No
  Sender: INCYTE
  Company Number: US-INCYTE CORPORATION-2024IN008695

PATIENT

DRUGS (1)
  1. JAKAFI [Suspect]
     Active Substance: RUXOLITINIB
     Dosage: 5 MILLIGRAM, BID
     Route: 048

REACTIONS (6)
  - Blood iron decreased [Unknown]
  - Localised infection [Unknown]
  - Product storage error [Unknown]
  - Dizziness [Recovering/Resolving]
  - Diarrhoea [Unknown]
  - Fatigue [Unknown]
